FAERS Safety Report 11329489 (Version 1)
Quarter: 2015Q3

REPORT INFORMATION
  Report Type: Spontaneous
  Country: FR (occurrence: FR)
  Receive Date: 20150803
  Receipt Date: 20150803
  Transmission Date: 20151125
  Serious: Yes (Other)
  Sender: FDA-Public Use
  Company Number: FR-CIPLA LTD.-2015FR06091

PATIENT

DRUGS (4)
  1. ZIDOVUDINE. [Suspect]
     Active Substance: ZIDOVUDINE
     Route: 064
  2. LOPINAVIR [Suspect]
     Active Substance: LOPINAVIR
     Route: 064
  3. RITONAVIR. [Suspect]
     Active Substance: RITONAVIR
     Route: 064
  4. ZDV/3TC/LPV/R [Suspect]
     Active Substance: LAMIVUDINE\LOPINAVIR\RITONAVIR\ZIDOVUDINE
     Dosage: UNK
     Route: 064

REACTIONS (3)
  - Foetal exposure during pregnancy [Unknown]
  - Neonatal asphyxia [Unknown]
  - Maternal drugs affecting foetus [None]
